FAERS Safety Report 10977197 (Version 2)
Quarter: 2015Q2

REPORT INFORMATION
  Report Type: Spontaneous
  Country: GB (occurrence: None)
  Receive Date: 20150331
  Receipt Date: 20150416
  Transmission Date: 20150821
  Serious: Yes (Death, Hospitalization, Other)
  Sender: FDA-Public Use
  Company Number: FK201501454

PATIENT
  Sex: Female

DRUGS (3)
  1. DESFERRIOXAMINE (DEFEROXAMINE MESILATE) (DEFEROXAMINE MESILATE) [Suspect]
     Active Substance: DEFEROXAMINE MESYLATE
     Indication: PRODUCT USED FOR UNKNOWN INDICATION
     Dosage: 5 IN 1 WK, SUBCUTANEOUS
     Route: 058
  2. SODIUM CHLORIDE 0.9% [Suspect]
     Active Substance: SODIUM CHLORIDE
     Indication: PRODUCT USED FOR UNKNOWN INDICATION
     Dosage: 5 IN 1 WK, SUBCUTANEOUS
     Route: 058
  3. WATER FOR INJECTION [Suspect]
     Active Substance: WATER
     Indication: PRODUCT USED FOR UNKNOWN INDICATION
     Dosage: 5 IN 1 WK, SUBCUTANEOUS
     Route: 058

REACTIONS (1)
  - Malaise [None]
